FAERS Safety Report 26094350 (Version 1)
Quarter: 2025Q4

REPORT INFORMATION
  Report Type: Report from Study
  Country: TW (occurrence: TW)
  Receive Date: 20251126
  Receipt Date: 20251126
  Transmission Date: 20260118
  Serious: Yes (Hospitalization)
  Sender: EISAI
  Company Number: TW-Eisai-EC-2025-200783

PATIENT
  Age: 79 Year
  Sex: Male
  Weight: 83 kg

DRUGS (6)
  1. LEQEMBI [Suspect]
     Active Substance: LECANEMAB-IRMB
     Indication: Product used for unknown indication
     Route: 042
     Dates: start: 20250926, end: 20251117
  2. SYNTAM [Concomitant]
  3. ARICEPT [Concomitant]
     Active Substance: DONEPEZIL HYDROCHLORIDE
  4. EXMEM [Concomitant]
  5. NORVASC [Concomitant]
     Active Substance: AMLODIPINE BESYLATE
  6. BISOPROLOL FUMARATE [Concomitant]
     Active Substance: BISOPROLOL FUMARATE

REACTIONS (1)
  - Subdural haematoma [Unknown]

NARRATIVE: CASE EVENT DATE: 20251121
